FAERS Safety Report 4381847-7 (Version None)
Quarter: 2004Q2

REPORT INFORMATION
  Report Type: 
  Country: None (occurrence: None)
  Receive Date: 20040617
  Receipt Date: 20040604
  Transmission Date: 20050107
  Serious: Yes (Other)
  Sender: FDA-Public Use
  Company Number: 20040600314

PATIENT
  Age: 55 Year
  Sex: Female

DRUGS (8)
  1. DIPHENHYDRAMINE [Suspect]
     Indication: PREMEDICATION
     Dosage: 50 MG PRN IV
     Route: 042
     Dates: start: 20031218, end: 20031218
  2. CARBOPLATIN [Concomitant]
  3. PACLITAXEL [Concomitant]
  4. DEXAMETHASONE [Concomitant]
  5. RANITIDINE [Concomitant]
  6. ONDANSETRON [Concomitant]
  7. ENALAPRIL MALEATE [Concomitant]
  8. METOPROLOL TARTRATE [Concomitant]

REACTIONS (2)
  - TYPE III IMMUNE COMPLEX MEDIATED REACTION [None]
  - VERTIGO [None]
